FAERS Safety Report 11173436 (Version 1)
Quarter: 2015Q2

REPORT INFORMATION
  Report Type: Report from Study
  Country: US (occurrence: US)
  Receive Date: 20150609
  Receipt Date: 20150609
  Transmission Date: 20150821
  Serious: Yes (Hospitalization)
  Sender: FDA-Public Use
  Company Number: US-AMGEN-USASL2015054517

PATIENT
  Age: 33 Year
  Sex: Male

DRUGS (1)
  1. ENBREL [Suspect]
     Active Substance: ETANERCEPT
     Indication: PSORIASIS
     Dosage: UNK UNK, QWK
     Route: 065
     Dates: start: 2006

REACTIONS (7)
  - Diarrhoea [Recovered/Resolved]
  - Drug effect decreased [Not Recovered/Not Resolved]
  - Hospitalisation [Recovered/Resolved]
  - Sepsis [Recovered/Resolved]
  - Psoriasis [Not Recovered/Not Resolved]
  - Heart valve incompetence [Recovered/Resolved]
  - Endocarditis [Recovered/Resolved]

NARRATIVE: CASE EVENT DATE: 2007
